FAERS Safety Report 22936365 (Version 6)
Quarter: 2024Q1

REPORT INFORMATION
  Report Type: Spontaneous
  Country: US (occurrence: US)
  Receive Date: 20230912
  Receipt Date: 20240222
  Transmission Date: 20240410
  Serious: Yes (Hospitalization, Other)
  Sender: FDA-Public Use
  Company Number: US-Stemline Therapeutics, Inc.-2023ST002313

PATIENT
  Age: 75 Year
  Sex: Female

DRUGS (3)
  1. ORSERDU [Suspect]
     Active Substance: ELACESTRANT
     Indication: Product used for unknown indication
     Dosage: 345 MG ONCE A DAY BY MOUTH.
     Route: 048
     Dates: start: 20230629
  2. ZOMETA [Suspect]
     Active Substance: ZOLEDRONIC ACID
     Indication: Product used for unknown indication
     Route: 065
     Dates: end: 20230807
  3. HYDROXYZINE [Suspect]
     Active Substance: HYDROXYZINE HYDROCHLORIDE
     Indication: Pruritus

REACTIONS (8)
  - Gastric ulcer [Unknown]
  - Hospitalisation [Unknown]
  - Abdominal pain upper [Unknown]
  - Intestinal polyp [Unknown]
  - Malaise [Unknown]
  - Erythema [Unknown]
  - Pruritus [Unknown]
  - Drug ineffective [Unknown]
